FAERS Safety Report 7199335-1 (Version None)
Quarter: 2010Q4

REPORT INFORMATION
  Report Type: 
  Country: None (occurrence: None)
  Receive Date: 20101228
  Receipt Date: 20101227
  Transmission Date: 20110411
  Serious: Yes (Other)
  Sender: FDA-Public Use
  Company Number: US-BRISTOL-MYERS SQUIBB COMPANY-15461205

PATIENT
  Age: 53 Year
  Sex: Female

DRUGS (1)
  1. GLUCOVANCE [Suspect]
     Indication: TYPE 2 DIABETES MELLITUS
     Dosage: 1 DF= 2.5 MG/500 MG

REACTIONS (1)
  - LAPAROSCOPIC SURGERY [None]
